FAERS Safety Report 5649664-5 (Version None)
Quarter: 2008Q1

REPORT INFORMATION
  Report Type: 
  Country: None (occurrence: None)
  Receive Date: 20080304
  Receipt Date: 20080226
  Transmission Date: 20080703
  Serious: Yes (Hospitalization)
  Sender: FDA-Public Use
  Company Number: US-BOEHRINGER INGELHEIM GMBH, GERMANY-2007-BP-18726BP

PATIENT
  Sex: Male

DRUGS (3)
  1. FLOMAX [Suspect]
     Indication: BENIGN PROSTATIC HYPERPLASIA
     Route: 048
     Dates: start: 20050101, end: 20070914
  2. T4 [Concomitant]
     Indication: THYROID DISORDER
  3. AMOXICILLIN [Concomitant]
     Indication: DENTAL IMPLANTATION

REACTIONS (10)
  - DIZZINESS [None]
  - DIZZINESS EXERTIONAL [None]
  - ECCHYMOSIS [None]
  - FALL [None]
  - HEAD INJURY [None]
  - JOINT INJURY [None]
  - PERIORBITAL HAEMATOMA [None]
  - SKIN LACERATION [None]
  - SOMNOLENCE [None]
  - TRANSIENT ISCHAEMIC ATTACK [None]
